FAERS Safety Report 20573152 (Version 7)
Quarter: 2024Q1

REPORT INFORMATION
  Report Type: Spontaneous
  Country: US (occurrence: US)
  Receive Date: 20220309
  Receipt Date: 20240209
  Transmission Date: 20240410
  Serious: Yes (Disabling, Other)
  Sender: FDA-Public Use
  Company Number: US-ORGANON-O2203USA000798

PATIENT
  Sex: Male
  Weight: 69.841 kg

DRUGS (4)
  1. SINGULAIR [Suspect]
     Active Substance: MONTELUKAST SODIUM
     Dosage: 2 PUFFS TWICE A DAY
     Route: 048
     Dates: start: 200310, end: 2006
  2. ADVAIR HFA [Concomitant]
     Active Substance: FLUTICASONE PROPIONATE\SALMETEROL XINAFOATE
     Indication: Asthma
     Dosage: UNK
  3. ALBUTEROL [Concomitant]
     Active Substance: ALBUTEROL
     Indication: Asthma
     Dosage: UNK
  4. VENTOLIN HFA [Concomitant]
     Active Substance: ALBUTEROL SULFATE
     Indication: Asthma
     Dosage: 2 PUFFS EVERY 4-6 HOURS, SPACED 60 SECONDS APART

REACTIONS (20)
  - Neuropsychological symptoms [Not Recovered/Not Resolved]
  - Tic [Recovering/Resolving]
  - Depression [Not Recovered/Not Resolved]
  - Autism spectrum disorder [Unknown]
  - Suicidal ideation [Unknown]
  - Tourette^s disorder [Unknown]
  - Major depression [Not Recovered/Not Resolved]
  - Obsessive-compulsive disorder [Not Recovered/Not Resolved]
  - Attention deficit hyperactivity disorder [Recovering/Resolving]
  - Anxiety [Recovering/Resolving]
  - Aggression [Unknown]
  - Behaviour disorder [Unknown]
  - Withdrawal syndrome [Unknown]
  - Conjunctivitis allergic [Unknown]
  - Memory impairment [Unknown]
  - Nervousness [Unknown]
  - Post-traumatic stress disorder [Not Recovered/Not Resolved]
  - Intrusive thoughts [Unknown]
  - Affective disorder [Recovering/Resolving]
  - Mental disorder [Unknown]

NARRATIVE: CASE EVENT DATE: 20030101
